FAERS Safety Report 4412116-4 (Version None)
Quarter: 2004Q3

REPORT INFORMATION
  Report Type: 
  Country: None (occurrence: None)
  Receive Date: 20040730
  Receipt Date: 20040721
  Transmission Date: 20050211
  Serious: Yes (Hospitalization)
  Sender: FDA-Public Use
  Company Number: JP-GLAXOSMITHKLINE-B0340253A

PATIENT
  Age: 53 Year
  Sex: Female

DRUGS (5)
  1. AMOXICILLIN [Suspect]
     Dosage: 750MG TWICE PER DAY
     Route: 048
     Dates: start: 20010830
  2. LANSOPRAZOLE [Suspect]
     Dosage: 30MG TWICE PER DAY
     Route: 048
     Dates: start: 20010830
  3. CLARITHROMYCIN [Suspect]
     Dosage: 200MG TWICE PER DAY
     Route: 048
     Dates: start: 20010830
  4. METHYLPREDNISOLONE [Concomitant]
     Dosage: 6MG PER DAY
  5. FAMOTIDINE [Concomitant]
     Indication: DYSPEPSIA
     Dosage: 40MG PER DAY
     Dates: start: 19950101

REACTIONS (8)
  - C-REACTIVE PROTEIN INCREASED [None]
  - CONJUNCTIVAL HYPERAEMIA [None]
  - FACE OEDEMA [None]
  - GENERALISED ERYTHEMA [None]
  - PYREXIA [None]
  - RASH [None]
  - RHONCHI [None]
  - TOXIC EPIDERMAL NECROLYSIS [None]
